FAERS Safety Report 21498054 (Version 1)
Quarter: 2022Q4

REPORT INFORMATION
  Report Type: Spontaneous
  Country: FR (occurrence: FR)
  Receive Date: 20221024
  Receipt Date: 20221024
  Transmission Date: 20230112
  Serious: Yes (Other)
  Sender: FDA-Public Use
  Company Number: FR-ASTELLAS-2022US037696

PATIENT
  Age: 74 Year
  Sex: Male

DRUGS (2)
  1. XTANDI [Suspect]
     Active Substance: ENZALUTAMIDE
     Indication: Prostate cancer
     Dosage: 160 MG, (4 TABLETS X 40 MG) ONCE DAILY
     Route: 048
     Dates: start: 202201
  2. Decapeptyl [Concomitant]
     Indication: Product used for unknown indication
     Dosage: UNK UNK, EVERY 3 MONTHS
     Route: 065

REACTIONS (2)
  - Malignant neoplasm progression [Unknown]
  - Product prescribing error [Recovered/Resolved]
